FAERS Safety Report 17912793 (Version 2)
Quarter: 2021Q4

REPORT INFORMATION
  Report Type: Spontaneous
  Country: US (occurrence: US)
  Receive Date: 20200618
  Receipt Date: 20211029
  Transmission Date: 20220303
  Serious: Yes (Other)
  Sender: FDA-Public Use
  Company Number: US-GLAXOSMITHKLINE-US2020093999

PATIENT
  Sex: Female

DRUGS (6)
  1. ZANTAC [Suspect]
     Active Substance: RANITIDINE HYDROCHLORIDE
     Indication: Product used for unknown indication
     Dosage: UNK
  2. RANITIDINE HYDROCHLORIDE [Suspect]
     Active Substance: RANITIDINE HYDROCHLORIDE
     Indication: Product used for unknown indication
     Dosage: UNK
  3. ZANTAC [Suspect]
     Active Substance: RANITIDINE HYDROCHLORIDE
     Indication: Dyspepsia
     Dosage: 150 MG, QD
     Route: 065
     Dates: start: 198801, end: 200912
  4. ZANTAC [Suspect]
     Active Substance: RANITIDINE HYDROCHLORIDE
     Dosage: 150 MG, 3X DAILY
     Route: 065
     Dates: start: 198801, end: 200912
  5. ZANTAC [Suspect]
     Active Substance: RANITIDINE HYDROCHLORIDE
     Indication: Dyspepsia
     Dosage: 150 MG, QD
     Route: 065
     Dates: start: 198801, end: 200912
  6. ZANTAC [Suspect]
     Active Substance: RANITIDINE HYDROCHLORIDE
     Dosage: 150 MG,3X DAILY
     Route: 065
     Dates: start: 198801, end: 200912

REACTIONS (2)
  - Gastrointestinal carcinoma [Unknown]
  - Colorectal cancer [Unknown]
